FAERS Safety Report 6758242-6 (Version None)
Quarter: 2010Q2

REPORT INFORMATION
  Report Type: 
  Country: None (occurrence: None)
  Receive Date: 20100607
  Receipt Date: 20100525
  Transmission Date: 20101027
  Serious: Yes (Other)
  Sender: FDA-Public Use
  Company Number: US-ELI_LILLY_AND_COMPANY-US201004001491

PATIENT
  Sex: Female
  Weight: 58.8 kg

DRUGS (6)
  1. GEMCITABINE HYDROCHLORIDE [Suspect]
     Indication: BLADDER CANCER
     Dosage: 1000 MG/M2, OTHER
     Route: 042
     Dates: start: 20100210
  2. GEMCITABINE HYDROCHLORIDE [Suspect]
     Route: 042
     Dates: start: 20100317
  3. CISPLATIN [Suspect]
     Indication: BLADDER CANCER
     Dosage: 70 MG/M2, OTHER
     Route: 042
     Dates: start: 20100210
  4. CADUET [Concomitant]
     Dosage: UNK, DAILY (1/D)
  5. DETROL LA [Concomitant]
     Dosage: UNK, DAILY (1/D)
  6. ASPIRIN [Concomitant]
     Dosage: 81 MG, DAILY (1/D)

REACTIONS (1)
  - DEEP VEIN THROMBOSIS [None]
